FAERS Safety Report 16616974 (Version 1)
Quarter: 2019Q3

REPORT INFORMATION
  Report Type: Report from Study
  Country: IT (occurrence: IT)
  Receive Date: 20190723
  Receipt Date: 20190723
  Transmission Date: 20191004
  Serious: Yes (Other)
  Sender: FDA-Public Use
  Company Number: IT-PFIZER INC-2019314673

PATIENT
  Age: 44 Year
  Sex: Male

DRUGS (2)
  1. TRANQUIRIT [Suspect]
     Active Substance: DIAZEPAM
     Indication: ANXIETY
     Dosage: 10 ML, SINGLE
     Route: 048
     Dates: start: 20190324, end: 20190324
  2. TAVOR (LORAZEPAM) [Suspect]
     Active Substance: LORAZEPAM
     Indication: ANXIETY
     Dosage: 10 DF, SINGLE
     Route: 048
     Dates: start: 20190324, end: 20190324

REACTIONS (2)
  - Sopor [Recovering/Resolving]
  - Drug abuse [Recovering/Resolving]

NARRATIVE: CASE EVENT DATE: 20190324
